FAERS Safety Report 6138188-7 (Version None)
Quarter: 2009Q1

REPORT INFORMATION
  Report Type: 
  Country: None (occurrence: None)
  Receive Date: 20090327
  Receipt Date: 20090327
  Transmission Date: 20090719
  Serious: No
  Sender: FDA-Public Use
  Company Number: None

PATIENT
  Age: 83 Year
  Sex: Male
  Weight: 84.8226 kg

DRUGS (1)
  1. FLECTOR [Suspect]
     Indication: ARTHRALGIA
     Dosage: ONE PATCH TWICE DAILY TOP
     Route: 061
     Dates: start: 20090223, end: 20090223

REACTIONS (3)
  - ABDOMINAL PAIN UPPER [None]
  - FEELING ABNORMAL [None]
  - NAUSEA [None]
